FAERS Safety Report 12398270 (Version 1)
Quarter: 2016Q2

REPORT INFORMATION
  Report Type: Spontaneous
  Country: US (occurrence: None)
  Receive Date: 20160523
  Receipt Date: 20160523
  Transmission Date: 20160815
  Serious: Yes (Other)
  Sender: FDA-Public Use
  Company Number: None

PATIENT
  Age: 64 Year
  Sex: Female
  Weight: 125.19 kg

DRUGS (2)
  1. LOSARTIN [Suspect]
     Active Substance: LOSARTAN
     Indication: DIASTOLIC DYSFUNCTION
     Route: 048
     Dates: start: 2014, end: 2015
  2. PRINIVIL [Suspect]
     Active Substance: LISINOPRIL
     Indication: ESSENTIAL HYPERTENSION
     Route: 048
     Dates: start: 2014, end: 2015

REACTIONS (3)
  - Arthralgia [None]
  - Visual impairment [None]
  - Oedema [None]
